FAERS Safety Report 8590003-8 (Version None)
Quarter: 2012Q3

REPORT INFORMATION
  Report Type: 
  Country: None (occurrence: None)
  Receive Date: 20120813
  Receipt Date: 20120808
  Transmission Date: 20120928
  Serious: Yes (Death, Life-Threatening)
  Sender: FDA-Public Use
  Company Number: US-ELI_LILLY_AND_COMPANY-US201203009374

PATIENT
  Sex: Male
  Weight: 88.435 kg

DRUGS (2)
  1. EFFIENT [Suspect]
     Indication: THROMBOSIS IN DEVICE
     Dosage: 60 MG, UNKNOWN
     Route: 065
     Dates: start: 20120326, end: 20120326
  2. PLAVIX [Concomitant]
     Dosage: 600 MG, UNK

REACTIONS (3)
  - INTRA-AORTIC BALLOON PLACEMENT [None]
  - RESPIRATORY DISTRESS [None]
  - CARDIOGENIC SHOCK [None]
